FAERS Safety Report 6344791-1 (Version None)
Quarter: 2009Q3

REPORT INFORMATION
  Report Type: 
  Country: None (occurrence: None)
  Receive Date: 20090904
  Receipt Date: 20090819
  Transmission Date: 20100115
  Serious: Yes (Hospitalization, Other)
  Sender: FDA-Public Use
  Company Number: 2008S1007876

PATIENT
  Age: 72 Year
  Sex: Female
  Weight: 53.0709 kg

DRUGS (12)
  1. PHOSPHOSODA FLAVOR NOT SPECIFIED [Suspect]
     Indication: COLONOSCOPY
     Dosage: PO
     Route: 048
     Dates: start: 20060821, end: 20060821
  2. ADVAIR HFA [Concomitant]
  3. ASPIRIN [Concomitant]
  4. CLARINEX /01202601/ [Concomitant]
  5. DETROL LA [Concomitant]
  6. SYNTHROID [Concomitant]
  7. FIBERCON /00567702/ [Concomitant]
  8. NORVASC [Concomitant]
  9. ROBAXIN [Concomitant]
  10. TRICOR [Concomitant]
  11. ZETIA [Concomitant]
  12. ZOLOFT [Concomitant]

REACTIONS (11)
  - CHOLELITHIASIS [None]
  - HYPERCALCAEMIC NEPHROPATHY [None]
  - HYPOVOLAEMIA [None]
  - METABOLIC ACIDOSIS [None]
  - NAUSEA [None]
  - PAIN [None]
  - PNEUMONIA [None]
  - REFUSAL OF TREATMENT BY PATIENT [None]
  - RENAL FAILURE ACUTE [None]
  - RENAL TUBULAR NECROSIS [None]
  - VOMITING [None]
